FAERS Safety Report 6885561-5 (Version None)
Quarter: 2010Q3

REPORT INFORMATION
  Report Type: 
  Country: None (occurrence: None)
  Receive Date: 20100729
  Receipt Date: 20080728
  Transmission Date: 20110219
  Serious: No
  Sender: FDA-Public Use
  Company Number: US-PFIZER INC-2008050855

PATIENT
  Sex: Female
  Weight: 90.72 kg

DRUGS (4)
  1. CELEBREX [Suspect]
     Indication: RHEUMATOID ARTHRITIS
  2. METOPROLOL TARTRATE [Concomitant]
     Dates: start: 20030101
  3. ATORVASTATIN [Concomitant]
     Dates: start: 20030101
  4. FOLIC ACID [Concomitant]
     Dates: start: 19930101

REACTIONS (1)
  - DRUG INEFFECTIVE [None]
